FAERS Safety Report 7501556-2 (Version None)
Quarter: 2011Q2

REPORT INFORMATION
  Report Type: 
  Country: None (occurrence: None)
  Receive Date: 20110524
  Receipt Date: 20110520
  Transmission Date: 20111010
  Serious: Yes (Other)
  Sender: FDA-Public Use
  Company Number: US-GILEAD-2011-0039699

PATIENT
  Sex: Female

DRUGS (2)
  1. ONGLYZA [Concomitant]
  2. RANEXA [Suspect]
     Indication: ANGINA PECTORIS

REACTIONS (2)
  - BLOOD GLUCOSE DECREASED [None]
  - DRUG INTERACTION [None]
